FAERS Safety Report 5363588-2 (Version None)
Quarter: 2007Q2

REPORT INFORMATION
  Report Type: 
  Country: None (occurrence: None)
  Receive Date: 20070620
  Receipt Date: 20070615
  Transmission Date: 20071010
  Serious: Yes (Other)
  Sender: FDA-Public Use
  Company Number: A0656943A

PATIENT
  Age: 66 Year
  Sex: Male

DRUGS (4)
  1. ADVAIR DISKUS 100/50 [Suspect]
     Indication: ASTHMA
     Dosage: 1PUFF TWICE PER DAY
     Route: 055
  2. GLYBURIDE [Concomitant]
  3. METFORMIN HCL [Concomitant]
  4. PROSTATE MEDICATION [Concomitant]

REACTIONS (6)
  - ARTHROPATHY [None]
  - BONE PAIN [None]
  - MACULAR DEGENERATION [None]
  - MOVEMENT DISORDER [None]
  - MYALGIA [None]
  - VISION BLURRED [None]
